FAERS Safety Report 16594839 (Version 1)
Quarter: 2019Q3

REPORT INFORMATION
  Report Type: Spontaneous
  Country: US (occurrence: US)
  Receive Date: 20190718
  Receipt Date: 20190718
  Transmission Date: 20191004
  Serious: Yes (Other)
  Sender: FDA-Public Use
  Company Number: US-PFIZER INC-2019056333

PATIENT
  Age: 65 Year
  Sex: Female
  Weight: 82.54 kg

DRUGS (1)
  1. XANAX [Suspect]
     Active Substance: ALPRAZOLAM
     Indication: ANXIETY
     Dosage: 0.5 MG, AS NEEDED (TAKE ONE TABLET BY MOUTH THREE TIMES DAILY AS NEEDED)
     Route: 048

REACTIONS (8)
  - Migraine [Unknown]
  - Seizure [Unknown]
  - Memory impairment [Unknown]
  - Fibromyalgia [Unknown]
  - Fall [Unknown]
  - Sleep apnoea syndrome [Unknown]
  - Brain injury [Unknown]
  - Off label use [Unknown]
